FAERS Safety Report 24603161 (Version 2)
Quarter: 2024Q4

REPORT INFORMATION
  Report Type: Spontaneous
  Country: US (occurrence: US)
  Receive Date: 20241111
  Receipt Date: 20241113
  Transmission Date: 20250115
  Serious: Yes (Disabling, Other)
  Sender: PFIZER
  Company Number: US-PFIZER INC-202400296905

PATIENT
  Age: 75 Year
  Sex: Female
  Weight: 79.38 kg

DRUGS (1)
  1. MARCAINE [Suspect]
     Active Substance: BUPIVACAINE HYDROCHLORIDE
     Indication: Synovial cyst
     Dosage: UNKNOWN DOSE BUT STATES IT WAS A LOCAL INJECTION
     Dates: start: 20241016

REACTIONS (6)
  - Limb injury [Unknown]
  - Blister [Unknown]
  - Injection site pain [Unknown]
  - Pain in extremity [Unknown]
  - Skin disorder [Unknown]
  - Skin discolouration [Unknown]
